FAERS Safety Report 7341073-6 (Version None)
Quarter: 2011Q1

REPORT INFORMATION
  Report Type: 
  Country: None (occurrence: None)
  Receive Date: 20110309
  Receipt Date: 20110224
  Transmission Date: 20110831
  Serious: Yes (Other)
  Sender: FDA-Public Use
  Company Number: PHHY2011HN15594

PATIENT
  Age: 70 Year
  Sex: Female

DRUGS (2)
  1. ACTERIC [Suspect]
     Indication: MUSCLE SPASMS
  2. ACTERIC [Suspect]
     Indication: NECK PAIN

REACTIONS (5)
  - DEHYDRATION [None]
  - VOMITING [None]
  - DRUG INTOLERANCE [None]
  - ABDOMINAL PAIN UPPER [None]
  - NAUSEA [None]
